FAERS Safety Report 14061570 (Version 1)
Quarter: 2017Q4

REPORT INFORMATION
  Report Type: Spontaneous
  Country: MY (occurrence: MY)
  Receive Date: 20171009
  Receipt Date: 20171009
  Transmission Date: 20180321
  Serious: Yes (Death, Other)
  Sender: FDA-Public Use
  Company Number: MY-009507513-1710MYS002968

PATIENT
  Sex: Female

DRUGS (2)
  1. JANUMET [Suspect]
     Active Substance: METFORMIN HYDROCHLORIDE\SITAGLIPTIN PHOSPHATE
     Dosage: 1 TABLET (50/850MG), UNK
     Route: 048
     Dates: start: 201702
  2. JANUMET [Suspect]
     Active Substance: METFORMIN HYDROCHLORIDE\SITAGLIPTIN PHOSPHATE
     Dosage: 1 TABLET (50/500MG), UNK
     Route: 048
     Dates: start: 201609, end: 201702

REACTIONS (2)
  - Diabetes mellitus inadequate control [Unknown]
  - Cardiac failure [Fatal]

NARRATIVE: CASE EVENT DATE: 201702
